FAERS Safety Report 20361953 (Version 5)
Quarter: 2022Q4

REPORT INFORMATION
  Report Type: Report from Study
  Country: US (occurrence: US)
  Receive Date: 20220121
  Receipt Date: 20221012
  Transmission Date: 20230112
  Serious: No
  Sender: FDA-Public Use
  Company Number: US-NOVARTISTESTPH-NVSC2022US012371

PATIENT
  Sex: Male

DRUGS (1)
  1. COSENTYX [Suspect]
     Active Substance: SECUKINUMAB
     Indication: Psoriasis
     Dosage: 300 MG, (ONCE A WEEK FOR 5 WEEKS AND THEN Q 4) (BENEATH THE SKIN,USUALLY VIA INJECTION)
     Route: 058

REACTIONS (4)
  - Discharge [Unknown]
  - Pain in extremity [Unknown]
  - Gait disturbance [Unknown]
  - Drug ineffective [Unknown]
